FAERS Safety Report 4393974-9 (Version None)
Quarter: 2004Q3

REPORT INFORMATION
  Report Type: 
  Country: None (occurrence: None)
  Receive Date: 20040702
  Receipt Date: 20040618
  Transmission Date: 20050211
  Serious: Yes (Hospitalization)
  Sender: FDA-Public Use
  Company Number: 200405466

PATIENT
  Age: 12 Year
  Sex: Female
  Weight: 32 kg

DRUGS (2)
  1. BOTOX [Suspect]
     Indication: MUSCLE SPASTICITY
     Dosage: 300 UNITS PRN IM
     Route: 030
  2. BOTOX [Suspect]
     Indication: TORTICOLLIS
     Dosage: 300 UNITS PRN IM
     Route: 030

REACTIONS (2)
  - NAUSEA [None]
  - VOMITING [None]
